FAERS Safety Report 10881654 (Version 1)
Quarter: 2015Q1

REPORT INFORMATION
  Report Type: Spontaneous
  Country: US (occurrence: None)
  Receive Date: 20150226
  Receipt Date: 20150226
  Transmission Date: 20150721
  Serious: Yes (Disabling)
  Sender: FDA-Public Use
  Company Number: None

PATIENT
  Age: 86 Year
  Sex: Female
  Weight: 54.43 kg

DRUGS (12)
  1. PRAVISATIN [Concomitant]
  2. ASPIRIN. [Concomitant]
     Active Substance: ASPIRIN
  3. UABRTALOL [Concomitant]
  4. KELP [Concomitant]
     Active Substance: KELP
  5. CALCIUM [Concomitant]
     Active Substance: CALCIUM
  6. AMITRIPTYLINE [Concomitant]
     Active Substance: AMITRIPTYLINE
  7. CENTUM SILVER [Concomitant]
  8. VITAMIN D [Concomitant]
     Active Substance: CHOLECALCIFEROL
  9. CHLORHEXIDINE RINSE [Concomitant]
  10. PROLIA [Suspect]
     Active Substance: DENOSUMAB
     Indication: OSTEOPOROSIS
     Dosage: 60 MG//ML 1 DOSE Q 6 MOS  ONE SQ SHOT IN 7/14
     Route: 058
     Dates: start: 201408, end: 201501
  11. FUROSEMIDE. [Concomitant]
     Active Substance: FUROSEMIDE
  12. TRIAMCINOLONE [Concomitant]
     Active Substance: TRIAMCINOLONE

REACTIONS (4)
  - Pain in jaw [None]
  - Noninfective gingivitis [None]
  - Pain [None]
  - Weight decreased [None]
